FAERS Safety Report 10217559 (Version 1)
Quarter: 2014Q2

REPORT INFORMATION
  Report Type: Spontaneous
  Country: SG (occurrence: SG)
  Receive Date: 20140604
  Receipt Date: 20140604
  Transmission Date: 20141212
  Serious: Yes (Life-Threatening, Other)
  Sender: FDA-Public Use
  Company Number: SG-AMGEN-SGPSP2014041456

PATIENT
  Age: 88 Year
  Sex: Female

DRUGS (5)
  1. XGEVA [Suspect]
     Indication: PRODUCT USED FOR UNKNOWN INDICATION
     Dosage: 120 MG, QMO
     Route: 065
     Dates: start: 20140225
  2. DILATREND [Concomitant]
     Dosage: UNK
  3. CONCOR [Concomitant]
     Dosage: UNK
  4. DETRUSITOL [Concomitant]
     Dosage: UNK
  5. FENTANYL [Concomitant]
     Dosage: UNK

REACTIONS (1)
  - Hypocalcaemia [Not Recovered/Not Resolved]
